FAERS Safety Report 4878812-X (Version None)
Quarter: 2005Q4

REPORT INFORMATION
  Report Type: 
  Country: None (occurrence: None)
  Receive Date: 20051209
  Receipt Date: 20050811
  Transmission Date: 20060501
  Serious: Yes (Other)
  Sender: FDA-Public Use
  Company Number: USA-2003-0010855

PATIENT
  Age: 41 Year
  Sex: Male

DRUGS (13)
  1. OXYCONTIN [Suspect]
     Indication: PAIN
  2. XANAX [Concomitant]
  3. CELEXA [Concomitant]
  4. ZOCOR [Concomitant]
  5. PHENERGAN [Concomitant]
  6. GLUCOPHAGE [Concomitant]
  7. TRAZODONE [Concomitant]
  8. VIOXX [Concomitant]
  9. DIOVAN [Concomitant]
  10. LIPITOR [Concomitant]
  11. KLONOPIN [Concomitant]
  12. FLUZEPAM [Concomitant]
  13. PROZAC [Concomitant]

REACTIONS (30)
  - ADVERSE DRUG REACTION [None]
  - ANXIETY [None]
  - ASTHENIA [None]
  - CHEST DISCOMFORT [None]
  - COUGH [None]
  - DEPRESSION [None]
  - DRUG DEPENDENCE [None]
  - DRUG INEFFECTIVE [None]
  - DRUG TOLERANCE INCREASED [None]
  - DRUG WITHDRAWAL SYNDROME [None]
  - EAR PAIN [None]
  - FATIGUE [None]
  - HALLUCINATION [None]
  - HYPOAESTHESIA [None]
  - IRRITABILITY [None]
  - NAIL AVULSION [None]
  - NASAL CONGESTION [None]
  - NAUSEA [None]
  - NECK PAIN [None]
  - OEDEMA PERIPHERAL [None]
  - ONYCHOMYCOSIS [None]
  - PAIN [None]
  - PHARYNGOLARYNGEAL PAIN [None]
  - PRURITUS [None]
  - PYREXIA [None]
  - SEXUAL DYSFUNCTION [None]
  - SLEEP DISORDER [None]
  - SOCIAL AVOIDANT BEHAVIOUR [None]
  - STRESS [None]
  - VOMITING [None]
